FAERS Safety Report 9272519 (Version 1)
Quarter: 2013Q2

REPORT INFORMATION
  Report Type: Spontaneous
  Country: GB (occurrence: GB)
  Receive Date: 20130506
  Receipt Date: 20130506
  Transmission Date: 20140414
  Serious: Yes (Hospitalization)
  Sender: FDA-Public Use
  Company Number: GB-TEVA-402315ISR

PATIENT
  Age: 79 Year
  Sex: Female

DRUGS (9)
  1. FUROSEMIDE [Suspect]
     Dosage: 80 MILLIGRAM DAILY;
     Route: 048
  2. SPIRONOLACTONE [Suspect]
     Route: 048
  3. OXCARBAZEPINE [Suspect]
     Dosage: 900 MILLIGRAM DAILY; 300MG ONCE IN THE MORNING, 600MG ONCE AT NIGHT
     Route: 048
  4. LANSOPRAZOLE [Suspect]
     Dosage: 15 MILLIGRAM DAILY;
     Route: 048
  5. LEVETIRACETAM [Concomitant]
  6. CALCICHEW D3 [Concomitant]
  7. PARACETAMOL [Concomitant]
  8. WARFARIN [Concomitant]
  9. BETAHISTINE [Concomitant]

REACTIONS (3)
  - Hyponatraemia [Recovering/Resolving]
  - Balance disorder [Unknown]
  - Confusional state [Unknown]
